FAERS Safety Report 10491866 (Version 1)
Quarter: 2014Q4

REPORT INFORMATION
  Report Type: Spontaneous
  Country: US (occurrence: US)
  Receive Date: 20141002
  Receipt Date: 20141002
  Transmission Date: 20150528
  Serious: No
  Sender: FDA-Public Use
  Company Number: US-GLAXOSMITHKLINE-A1061049A

PATIENT
  Age: 52 Year
  Sex: Male

DRUGS (3)
  1. ADVAIR HFA [Suspect]
     Active Substance: FLUTICASONE PROPIONATE\SALMETEROL XINAFOATE
     Indication: BRONCHITIS
     Dosage: 1PUFF TWICE PER DAY
     Route: 055
     Dates: start: 201301
  2. LASIX [Concomitant]
     Active Substance: FUROSEMIDE
  3. TENORMIN [Concomitant]
     Active Substance: ATENOLOL

REACTIONS (7)
  - Dyspnoea [Unknown]
  - Paraesthesia [Unknown]
  - Feeling abnormal [Unknown]
  - Off label use [Unknown]
  - Incorrect dose administered [Unknown]
  - Feeling jittery [Unknown]
  - Tremor [Unknown]

NARRATIVE: CASE EVENT DATE: 20140130
